FAERS Safety Report 7865390-6 (Version None)
Quarter: 2011Q4

REPORT INFORMATION
  Report Type: 
  Country: None (occurrence: None)
  Receive Date: 20111028
  Receipt Date: 20101210
  Transmission Date: 20120403
  Serious: No
  Sender: FDA-Public Use
  Company Number: US-GLAXOSMITHKLINE-A0899320A

PATIENT
  Age: 77 Year
  Sex: Male

DRUGS (4)
  1. ALBUTEROL [Concomitant]
  2. IPRATROPIUM BROMIDE [Concomitant]
  3. ADVAIR DISKUS 100/50 [Suspect]
     Indication: CHRONIC OBSTRUCTIVE PULMONARY DISEASE
     Dosage: 1PUFF TWICE PER DAY
     Route: 055
     Dates: start: 20070101
  4. COMBIVENT [Concomitant]

REACTIONS (1)
  - CANDIDIASIS [None]
